FAERS Safety Report 10760238 (Version 2)
Quarter: 2015Q1

REPORT INFORMATION
  Report Type: Spontaneous
  Country: US (occurrence: US)
  Receive Date: 20150204
  Receipt Date: 20150211
  Transmission Date: 20150721
  Serious: No
  Sender: FDA-Public Use
  Company Number: US-ASTRAZENECA-2015SE09728

PATIENT
  Age: 29742 Day
  Sex: Female

DRUGS (3)
  1. CELEBREX [Concomitant]
     Active Substance: CELECOXIB
  2. FUROSEMIDE. [Concomitant]
     Active Substance: FUROSEMIDE
  3. CANDESARTAN CILEXETIL. [Suspect]
     Active Substance: CANDESARTAN CILEXETIL
     Indication: HYPERTENSION
     Route: 048
     Dates: start: 20150118

REACTIONS (1)
  - Pain in extremity [Not Recovered/Not Resolved]

NARRATIVE: CASE EVENT DATE: 20150119
